FAERS Safety Report 5614518-7 (Version None)
Quarter: 2008Q1

REPORT INFORMATION
  Report Type: 
  Country: None (occurrence: None)
  Receive Date: 20080205
  Receipt Date: 20080110
  Transmission Date: 20080703
  Serious: No
  Sender: FDA-Public Use
  Company Number: US-BOEHRINGER INGELHEIM GMBH, GERMANY-2008-BP-00573BP

PATIENT
  Sex: Female

DRUGS (2)
  1. ZANTAC 75 [Suspect]
     Indication: DYSPEPSIA
     Route: 048
     Dates: start: 20080110, end: 20080110
  2. ZANTAC 75 [Suspect]

REACTIONS (4)
  - CHILLS [None]
  - DISORIENTATION [None]
  - DRY MOUTH [None]
  - POLLAKIURIA [None]
